FAERS Safety Report 6355816-1 (Version None)
Quarter: 2009Q3

REPORT INFORMATION
  Report Type: 
  Country: None (occurrence: None)
  Receive Date: 20090915
  Receipt Date: 20090901
  Transmission Date: 20100115
  Serious: Yes (Other)
  Sender: FDA-Public Use
  Company Number: IL-RANBAXY-2009RR-26885

PATIENT
  Age: 20 Year
  Sex: Female

DRUGS (3)
  1. IBUPROFEN [Suspect]
     Indication: URINARY TRACT INFECTION
  2. NITROFURANTOIN [Concomitant]
     Indication: URINARY TRACT INFECTION
  3. DIPYRONE [Concomitant]
     Indication: URINARY TRACT INFECTION

REACTIONS (1)
  - MORPHOEA [None]
